FAERS Safety Report 9751127 (Version 2)
Quarter: 2014Q1

REPORT INFORMATION
  Report Type: Spontaneous
  Country: US (occurrence: US)
  Receive Date: 20131212
  Receipt Date: 20140307
  Transmission Date: 20141002
  Serious: No
  Sender: FDA-Public Use
  Company Number: US-TEVA-450824USA

PATIENT
  Age: 33 Year
  Sex: Female
  Weight: 113.5 kg

DRUGS (2)
  1. PLAN B ONE-STEP [Suspect]
     Indication: POST COITAL CONTRACEPTION
     Dosage: 1.5 MILLIGRAM DAILY;
     Route: 048
     Dates: start: 20131128, end: 20131128
  2. METFORMIN [Concomitant]
     Indication: GLUCOSE TOLERANCE IMPAIRED

REACTIONS (3)
  - Breast cyst [Recovered/Resolved]
  - Mood swings [Recovered/Resolved]
  - Breast pain [Recovered/Resolved]
